FAERS Safety Report 16633800 (Version 1)
Quarter: 2019Q3

REPORT INFORMATION
  Report Type: Spontaneous
  Country: DK (occurrence: DK)
  Receive Date: 20190725
  Receipt Date: 20190725
  Transmission Date: 20191004
  Serious: Yes (Hospitalization, Other)
  Sender: FDA-Public Use
  Company Number: DK-GILEAD-2013-0069943

PATIENT
  Age: 39 Year
  Sex: Male

DRUGS (8)
  1. EFAVIRENZ. [Suspect]
     Active Substance: EFAVIRENZ
     Indication: HIV INFECTION
  2. DICLOXACILLIN [Concomitant]
     Active Substance: DICLOXACILLIN
     Dosage: 1 G, QID
  3. SULFAMETHOXAZOLE AND TRIMETHOPRIM [Concomitant]
     Active Substance: SULFAMETHOXAZOLE\TRIMETHOPRIM
     Indication: PNEUMOCYSTIS JIROVECII PNEUMONIA
     Dosage: 1600 /320 MG, QID
     Route: 065
  4. DICLOXACILLIN [Concomitant]
     Active Substance: DICLOXACILLIN
     Dosage: 1 G, QID
  5. VIREAD [Suspect]
     Active Substance: TENOFOVIR DISOPROXIL FUMARATE
     Indication: HIV INFECTION
     Dosage: 245 MG, QD
     Route: 065
  6. EFAVIRENZ. [Suspect]
     Active Substance: EFAVIRENZ
     Indication: HIV INFECTION
     Dosage: 600 MG, QD
     Route: 065
  7. EMTRIVA [Suspect]
     Active Substance: EMTRICITABINE
     Indication: HIV INFECTION
     Dosage: 200 MG, QD
     Route: 065
  8. SULFAMETHOXAZOLE AND TRIMETHOPRIM [Concomitant]
     Active Substance: SULFAMETHOXAZOLE\TRIMETHOPRIM
     Dosage: 1600 /320 MG, QID
     Route: 065

REACTIONS (6)
  - Arthralgia [Unknown]
  - Bursitis [Recovered/Resolved]
  - Atypical mycobacterial infection [Recovered/Resolved]
  - Scar [Unknown]
  - Bursitis infective [Recovering/Resolving]
  - Immune reconstitution inflammatory syndrome [Recovered/Resolved]
